FAERS Safety Report 18003709 (Version 2)
Quarter: 2021Q3

REPORT INFORMATION
  Report Type: Spontaneous
  Country: US (occurrence: US)
  Receive Date: 20200709
  Receipt Date: 20210709
  Transmission Date: 20211014
  Serious: No
  Sender: FDA-Public Use
  Company Number: US-ASTELLAS-2020US000975

PATIENT
  Age: 80 Year
  Sex: Female

DRUGS (2)
  1. MYRBETRIQ [Suspect]
     Active Substance: MIRABEGRON
     Indication: NEUROGENIC BLADDER
  2. MYRBETRIQ [Suspect]
     Active Substance: MIRABEGRON
     Indication: MULTIPLE SCLEROSIS
     Route: 065
     Dates: start: 20190321

REACTIONS (8)
  - Asthenia [Unknown]
  - Feeling abnormal [Unknown]
  - Nausea [Unknown]
  - Hypoaesthesia [Recovered/Resolved]
  - Blood pressure increased [Unknown]
  - Illness [Unknown]
  - Product use in unapproved indication [Unknown]
  - Muscular weakness [Not Recovered/Not Resolved]

NARRATIVE: CASE EVENT DATE: 20190322
